FAERS Safety Report 16163819 (Version 1)
Quarter: 2019Q2

REPORT INFORMATION
  Report Type: Spontaneous
  Country: ES (occurrence: ES)
  Receive Date: 20190405
  Receipt Date: 20190405
  Transmission Date: 20190711
  Serious: Yes (Hospitalization)
  Sender: FDA-Public Use
  Company Number: ES-ASTRAZENECA-2019SE49246

PATIENT
  Age: 72 Year
  Sex: Male

DRUGS (6)
  1. METFORMIN [Suspect]
     Active Substance: METFORMIN HYDROCHLORIDE
     Dosage: 850 (UNITS NOT SPECIFIED), 1 TABLET, Q12H
     Route: 065
  2. ENALAPRIL MALEATE. [Suspect]
     Active Substance: ENALAPRIL MALEATE
     Dosage: 10 MILLIGRAM, Q12H
     Route: 065
  3. ADIRO [Suspect]
     Active Substance: ASPIRIN
     Dosage: 100 MILLIGRAM100.0MG UNKNOWN
     Route: 065
  4. BISOPROLOL [Suspect]
     Active Substance: BISOPROLOL
     Dosage: 2.5 MILLIGRAM2.5MG UNKNOWN
     Route: 065
  5. OMEPRAZOLE. [Suspect]
     Active Substance: OMEPRAZOLE
     Dosage: 20 MILLIGRAM20.0MG UNKNOWN
     Route: 048
  6. ATORVASTATIN [Suspect]
     Active Substance: ATORVASTATIN
     Dosage: 40 MILLIGRAM40.0MG UNKNOWN
     Route: 065

REACTIONS (5)
  - Ischaemic cardiomyopathy [Unknown]
  - Cardiorenal syndrome [Unknown]
  - Acute myocardial infarction [Unknown]
  - Vascular stent stenosis [Unknown]
  - Coronary artery disease [Unknown]
